FAERS Safety Report 9388331 (Version 1)
Quarter: 2013Q3

REPORT INFORMATION
  Report Type: Spontaneous
  Country: US (occurrence: US)
  Receive Date: 20130708
  Receipt Date: 20130708
  Transmission Date: 20140515
  Serious: Yes (Hospitalization, Disabling, Other)
  Sender: FDA-Public Use
  Company Number: US-009507513-1202USA02289

PATIENT
  Sex: Female

DRUGS (20)
  1. FOSAMAX [Suspect]
     Indication: OSTEOPOROSIS
     Dosage: 70 MG, UNK
  2. FOSAMAX [Suspect]
     Indication: OSTEOPOROSIS
     Dosage: 10 MG, UNK
     Route: 048
     Dates: start: 19980817
  3. FOSAMAX [Suspect]
     Dosage: UNK
     Route: 048
     Dates: start: 199901, end: 200906
  4. FOSAMAX [Suspect]
     Dosage: 70 MG, QW
     Route: 048
  5. ASCORBIC ACID [Concomitant]
     Dosage: UNK UNK, QD
  6. CALCIUM (UNSPECIFIED) [Concomitant]
     Dosage: 1200 MG, BID
  7. CENTRUM SILVER [Concomitant]
     Dosage: UNK UNK, QD
  8. VITAMIN D (UNSPECIFIED) [Concomitant]
  9. PREMPRO [Concomitant]
     Dates: start: 19960523
  10. CLARITIN [Concomitant]
     Dosage: 10 MG, QD
     Route: 048
     Dates: start: 19980817
  11. RHINOCORT (BECLOMETHASONE DIPROPIONATE) [Concomitant]
     Dosage: 2 PUFFS
     Route: 055
     Dates: start: 19951017
  12. CLARITIN-D [Concomitant]
     Indication: NASAL OBSTRUCTION
     Route: 048
  13. KEFLEX [Concomitant]
  14. BENADRYL [Concomitant]
  15. MACROBID (NITROFURANTOIN) [Concomitant]
     Indication: URINARY TRACT INFECTION
  16. MACRODANTIN [Concomitant]
     Indication: URINARY TRACT INFECTION
     Dosage: 100 MG, BID
  17. ALLEGRA [Concomitant]
     Indication: MULTIPLE ALLERGIES
     Dosage: 180 MG, QD
  18. ALLEGRA-D [Concomitant]
     Indication: MULTIPLE ALLERGIES
     Dosage: UNK UNK, QD
  19. NASONEX [Concomitant]
     Indication: MULTIPLE ALLERGIES
     Route: 055
     Dates: start: 20061227
  20. RHINOCORT AQUA [Concomitant]
     Indication: MULTIPLE ALLERGIES

REACTIONS (59)
  - Femur fracture [Not Recovered/Not Resolved]
  - Device failure [Unknown]
  - Device failure [Unknown]
  - Impaired healing [Unknown]
  - Femoral neck fracture [Unknown]
  - Cholecystitis acute [Unknown]
  - Abdominal adhesions [Unknown]
  - Post procedural haemorrhage [Unknown]
  - Impaired healing [Unknown]
  - Staphylococcal infection [Unknown]
  - Seroma [Unknown]
  - Bone disorder [Unknown]
  - Staphylococcal infection [Unknown]
  - Bladder disorder [Unknown]
  - Fracture nonunion [Unknown]
  - Rash [Unknown]
  - Therapeutic response decreased [Unknown]
  - Hip arthroplasty [Unknown]
  - Staphylococcal infection [Unknown]
  - Adverse drug reaction [Unknown]
  - Device failure [Unknown]
  - Nasal septum deviation [Unknown]
  - Paranasal cyst [Unknown]
  - Sinus polyp [Unknown]
  - Sinus disorder [Unknown]
  - Chronic sinusitis [Not Recovered/Not Resolved]
  - Trigger finger [Unknown]
  - Dermatitis [Unknown]
  - Tympanosclerosis [Unknown]
  - Tonsillar disorder [Unknown]
  - Cubital tunnel syndrome [Unknown]
  - Rosacea [Unknown]
  - Diverticulum [Unknown]
  - Colitis [Unknown]
  - Haemorrhoids [Unknown]
  - Upper respiratory tract infection [Unknown]
  - Tendonitis [Unknown]
  - Skin discolouration [Unknown]
  - Eustachian tube dysfunction [Unknown]
  - Adverse drug reaction [Unknown]
  - Change of bowel habit [Unknown]
  - Dolichocolon [Unknown]
  - Gastrointestinal disorder [Unknown]
  - Iliotibial band syndrome [Unknown]
  - Bursitis [Unknown]
  - Sciatica [Unknown]
  - Hypertension [Unknown]
  - Asthma [Unknown]
  - Sinusitis [Unknown]
  - Osteoarthritis [Unknown]
  - Device failure [Unknown]
  - Hernia [Unknown]
  - Anaemia [Unknown]
  - Osteopenia [Unknown]
  - Drug ineffective [Unknown]
  - Gastrooesophageal reflux disease [Unknown]
  - Diarrhoea [Unknown]
  - Dyspepsia [Unknown]
  - Infection [Not Recovered/Not Resolved]
